FAERS Safety Report 23996256 (Version 1)
Quarter: 2024Q2

REPORT INFORMATION
  Report Type: Spontaneous
  Country: DK (occurrence: DK)
  Receive Date: 20240620
  Receipt Date: 20240620
  Transmission Date: 20240716
  Serious: Yes (Hospitalization, Other)
  Sender: FDA-Public Use
  Company Number: DK-LUNDBECK-DKLU4000488

PATIENT
  Sex: Female

DRUGS (1)
  1. BRINTELLIX [Suspect]
     Active Substance: VORTIOXETINE HYDROBROMIDE
     Indication: Depression
     Dosage: 5 MILLIGRAM, QD
     Route: 048

REACTIONS (5)
  - Infection [Unknown]
  - Renal impairment [Unknown]
  - Hypoaesthesia [Not Recovered/Not Resolved]
  - Abdominal pain upper [Not Recovered/Not Resolved]
  - Dizziness [Not Recovered/Not Resolved]
